FAERS Safety Report 22063893 (Version 1)
Quarter: 2023Q1

REPORT INFORMATION
  Report Type: Spontaneous
  Country: CA (occurrence: CA)
  Receive Date: 20230306
  Receipt Date: 20230306
  Transmission Date: 20230418
  Serious: Yes (Other)
  Sender: FDA-Public Use
  Company Number: CA-SAMSUNG BIOEPIS-SB-2023-05717

PATIENT
  Age: 42 Year
  Sex: Female
  Weight: 80 kg

DRUGS (2)
  1. INFLIXIMAB [Suspect]
     Active Substance: INFLIXIMAB
     Indication: Crohn^s disease
     Route: 042
  2. INFLIXIMAB [Suspect]
     Active Substance: INFLIXIMAB
     Route: 042

REACTIONS (11)
  - Asthenia [Unknown]
  - Emotional distress [Unknown]
  - Fatigue [Unknown]
  - Fistula [Unknown]
  - Illness [Unknown]
  - Musculoskeletal pain [Unknown]
  - Pain in extremity [Unknown]
  - Starvation [Unknown]
  - Stress [Unknown]
  - Intentional product use issue [Unknown]
  - Off label use [Unknown]
